FAERS Safety Report 13334097 (Version 1)
Quarter: 2017Q1

REPORT INFORMATION
  Report Type: Spontaneous
  Country: US (occurrence: US)
  Receive Date: 20170314
  Receipt Date: 20170314
  Transmission Date: 20170428
  Serious: Yes (Hospitalization)
  Sender: FDA-Public Use
  Company Number: US-HORIZON-RAV-0070-2017

PATIENT
  Age: 1 Year
  Sex: Male

DRUGS (1)
  1. RAVICTI [Suspect]
     Active Substance: GLYCEROL PHENYLBUTYRATE
     Indication: ARGINASE DEFICIENCY
     Dosage: 1.5 ML THREE TIMES DAILY

REACTIONS (4)
  - Abnormal behaviour [Unknown]
  - Metabolic acidosis [Not Recovered/Not Resolved]
  - Hyponatraemia [Not Recovered/Not Resolved]
  - Off label use [Unknown]

NARRATIVE: CASE EVENT DATE: 20170303
